FAERS Safety Report 17280024 (Version 1)
Quarter: 2020Q1

REPORT INFORMATION
  Report Type: Report from Study
  Country: None (occurrence: US)
  Receive Date: 20200117
  Receipt Date: 20200117
  Transmission Date: 20200409
  Serious: Yes (Hospitalization, Other)
  Sender: FDA-Public Use
  Company Number: US-ABBVIE-20K-163-3226886-00

PATIENT
  Sex: Female

DRUGS (3)
  1. HUMIRA [Suspect]
     Active Substance: ADALIMUMAB
     Indication: COLITIS ULCERATIVE
     Dosage: CITRATE FREE
     Route: 058
  2. HUMIRA [Suspect]
     Active Substance: ADALIMUMAB
     Indication: COLITIS ULCERATIVE
     Route: 058
  3. HUMIRA [Suspect]
     Active Substance: ADALIMUMAB
     Indication: PYODERMA GANGRENOSUM
     Dosage: CITRATE FREE
     Route: 058

REACTIONS (11)
  - Colitis ulcerative [Recovered/Resolved]
  - Gastrointestinal fistula [Unknown]
  - Gastric ulcer [Recovered/Resolved]
  - Maternal exposure during pregnancy [Unknown]
  - Injection site pain [Recovered/Resolved]
  - Skin ulcer [Unknown]
  - Drug ineffective [Unknown]
  - Post procedural complication [Unknown]
  - Megacolon [Unknown]
  - Sepsis [Unknown]
  - Abscess intestinal [Unknown]
